FAERS Safety Report 10387114 (Version 1)
Quarter: 2014Q1

REPORT INFORMATION
  Report Type: Spontaneous
  Country: US (occurrence: None)
  Receive Date: 20140306
  Receipt Date: 20140306
  Transmission Date: 20141002
  Serious: Yes (Hospitalization)
  Sender: FDA-Public Use
  Company Number: 163-21880-13043233

PATIENT
  Age: 67 Year
  Sex: Female
  Weight: 49.44 kg

DRUGS (1)
  1. REVLIMID (LENALIDOMIDE) (10 MILLIGRAM, CAPSULES) [Suspect]
     Indication: PLASMA CELL MYELOMA
     Route: 048
     Dates: start: 20120120

REACTIONS (3)
  - Renal failure acute [None]
  - Anaemia [None]
  - Blood count abnormal [None]
